FAERS Safety Report 8690037 (Version 2)
Quarter: 2012Q4

REPORT INFORMATION
  Report Type: 
  Country: US (occurrence: US)
  Receive Date: 20120727
  Receipt Date: 20120911
  Transmission Date: 20130627
  Serious: No
  Sender: FDA-Public Use
  Company Number: US-ASTRAZENECA-2012SE10431

PATIENT
  Age: 63 Year
  Sex: Female
  Weight: 77.1 kg

DRUGS (9)
  1. SEROQUEL [Suspect]
     Indication: DEPRESSION
     Route: 048
  2. SEROQUEL [Suspect]
     Indication: ANXIETY
     Route: 048
  3. SEROQUEL [Suspect]
     Indication: INSOMNIA
     Route: 048
  4. SEROQUEL [Suspect]
     Indication: BIPOLAR DISORDER
     Route: 048
  5. LISINOPRIL HCT [Suspect]
     Route: 048
  6. CLONAZEPAM [Concomitant]
  7. GENERIC WELLBUTRIN [Concomitant]
  8. GENERIC ZOLOFT [Concomitant]
  9. LEVOTHYROXINE [Concomitant]

REACTIONS (9)
  - Malaise [Unknown]
  - Withdrawal syndrome [Unknown]
  - Mood swings [Unknown]
  - Somnolence [Unknown]
  - Depression [Unknown]
  - Hypersensitivity [Unknown]
  - Somnolence [Unknown]
  - Drug dose omission [Unknown]
  - Off label use [Unknown]
